FAERS Safety Report 7243810-8 (Version None)
Quarter: 2011Q1

REPORT INFORMATION
  Report Type: 
  Country: None (occurrence: None)
  Receive Date: 20110125
  Receipt Date: 20110112
  Transmission Date: 20110831
  Serious: Yes (Other)
  Sender: FDA-Public Use
  Company Number: PHHY2011NL03117

PATIENT
  Sex: Male
  Weight: 68 kg

DRUGS (1)
  1. ITRACONAZOLE [Suspect]
     Indication: FUNGAL INFECTION
     Route: 048
     Dates: start: 20101222, end: 20101227

REACTIONS (1)
  - PANCREATITIS [None]
